FAERS Safety Report 5215842-2 (Version None)
Quarter: 2007Q1

REPORT INFORMATION
  Report Type: 
  Country: None (occurrence: None)
  Receive Date: 20070123
  Receipt Date: 20070117
  Transmission Date: 20070707
  Serious: Yes (Hospitalization)
  Sender: FDA-Public Use
  Company Number: US-GLAXOSMITHKLINE-A0636038A

PATIENT
  Age: 84 Year
  Sex: Male
  Weight: 176 kg

DRUGS (7)
  1. DUTASTERIDE [Suspect]
     Indication: PROSTATE CANCER
     Dosage: .5MG PER DAY
     Route: 048
     Dates: start: 20061129, end: 20061218
  2. KETOCONAZOLE [Suspect]
     Indication: PROSTATE CANCER
     Dosage: 400MG THREE TIMES PER DAY
     Route: 048
     Dates: start: 20061129, end: 20061218
  3. HYDROCORTISONE [Suspect]
     Indication: PROSTATE CANCER
     Dosage: 40MG PER DAY
     Route: 048
     Dates: start: 20061129
  4. NAMENDA [Concomitant]
     Dosage: 5MG TWICE PER DAY
     Route: 048
     Dates: start: 20061211
  5. LISINOPRIL [Concomitant]
     Indication: HYPERTENSION
     Dosage: 10MG PER DAY
     Route: 048
     Dates: start: 20061001
  6. PAXIL [Concomitant]
     Indication: DEPRESSION
     Dosage: 25MG PER DAY
     Route: 048
     Dates: start: 20061114, end: 20061218
  7. LUPRON [Concomitant]
     Indication: PROSTATE CANCER
     Route: 030
     Dates: start: 20060727

REACTIONS (2)
  - COGNITIVE DISORDER [None]
  - CONFUSIONAL STATE [None]
